FAERS Safety Report 8202316-X (Version None)
Quarter: 2012Q1

REPORT INFORMATION
  Report Type: 
  Country: None (occurrence: None)
  Receive Date: 20120312
  Receipt Date: 20110314
  Transmission Date: 20120608
  Serious: No
  Sender: FDA-Public Use
  Company Number: US-ABBOTT-11P-163-0710671-00

PATIENT
  Sex: Female
  Weight: 55.388 kg

DRUGS (2)
  1. DEPAKOTE [Suspect]
     Indication: MIGRAINE
     Dosage: LOWEST DOSE, EXACT DOSE UNKNOWN 1 IN 1 D
     Route: 048
     Dates: start: 20100101, end: 20100101
  2. MULTIPLE OTHER MEDICATIONS [Concomitant]
     Indication: PRODUCT USED FOR UNKNOWN INDICATION

REACTIONS (1)
  - ALOPECIA [None]
